FAERS Safety Report 24772499 (Version 2)
Quarter: 2025Q1

REPORT INFORMATION
  Report Type: Spontaneous
  Country: US (occurrence: US)
  Receive Date: 20241224
  Receipt Date: 20250314
  Transmission Date: 20250409
  Serious: Yes (Other)
  Sender: BRISTOL-MYERS SQUIBB COMPANY
  Company Number: US-BRISTOL-MYERS SQUIBB COMPANY-2024-199387

PATIENT
  Age: 64 Year
  Sex: Male

DRUGS (2)
  1. POMALYST [Suspect]
     Active Substance: POMALIDOMIDE
     Indication: Plasma cell myeloma recurrent
     Route: 048
     Dates: start: 202411
  2. POMALYST [Suspect]
     Active Substance: POMALIDOMIDE
     Route: 048
     Dates: start: 202411

REACTIONS (14)
  - Pain [Unknown]
  - Dyspnoea [Unknown]
  - Anxiety [Unknown]
  - Chest pain [Unknown]
  - Diarrhoea [Unknown]
  - Loss of personal independence in daily activities [Unknown]
  - Neuropathy peripheral [Unknown]
  - Fatigue [Unknown]
  - Palmar-plantar erythrodysaesthesia syndrome [Unknown]
  - Skin disorder [Unknown]
  - Pain of skin [Unknown]
  - Vomiting [Unknown]
  - Nausea [Unknown]
  - Eating disorder [Unknown]

NARRATIVE: CASE EVENT DATE: 20250304
